FAERS Safety Report 7204576-0 (Version None)
Quarter: 2010Q4

REPORT INFORMATION
  Report Type: 
  Country: None (occurrence: None)
  Receive Date: 20101230
  Receipt Date: 20101220
  Transmission Date: 20110411
  Serious: Yes (Disabling, Other)
  Sender: FDA-Public Use
  Company Number: FR-PFIZER INC-2010153176

PATIENT
  Age: 78 Year
  Sex: Male

DRUGS (2)
  1. TORISEL [Suspect]
     Indication: MANTLE CELL LYMPHOMA
     Dosage: UNK
     Route: 042
     Dates: start: 20091222, end: 20100702
  2. ALPHAGAN [Concomitant]
     Indication: OPEN ANGLE GLAUCOMA

REACTIONS (2)
  - BLINDNESS [None]
  - INTERSTITIAL LUNG DISEASE [None]
